FAERS Safety Report 17482083 (Version 1)
Quarter: 2020Q1

REPORT INFORMATION
  Report Type: Spontaneous
  Country: US (occurrence: US)
  Receive Date: 20200302
  Receipt Date: 20200302
  Transmission Date: 20200409
  Serious: Yes (Hospitalization, Other)
  Sender: FDA-Public Use
  Company Number: US-CELLTRION INC.-2020US019863

PATIENT

DRUGS (3)
  1. INFLIXIMAB (UNKNOWN) [Suspect]
     Active Substance: INFLIXIMAB
     Dosage: EVERY 6 WEEKS
  2. INFLIXIMAB (UNKNOWN) [Suspect]
     Active Substance: INFLIXIMAB
     Indication: COLITIS ULCERATIVE
     Dosage: 10 MG/KG/DOSE EVERY 8 WEEKS
  3. INFLIXIMAB (UNKNOWN) [Suspect]
     Active Substance: INFLIXIMAB
     Dosage: EVERY 4 WEEKS

REACTIONS (5)
  - Product use issue [Unknown]
  - Condition aggravated [Recovering/Resolving]
  - Henoch-Schonlein purpura [Recovering/Resolving]
  - Overdose [Unknown]
  - Drug level decreased [Recovered/Resolved]
